FAERS Safety Report 17751763 (Version 2)
Quarter: 2020Q2

REPORT INFORMATION
  Report Type: Spontaneous
  Country: DE (occurrence: DE)
  Receive Date: 20200506
  Receipt Date: 20200515
  Transmission Date: 20200714
  Serious: Yes (Hospitalization, Other)
  Sender: FDA-Public Use
  Company Number: DE-ASTRAZENECA-2020SE56549

PATIENT
  Age: 80 Year
  Sex: Female
  Weight: 84 kg

DRUGS (2)
  1. ESOMEPRAZOL [Suspect]
     Active Substance: ESOMEPRAZOLE
     Route: 048
     Dates: end: 202002
  2. RIVAROXABAN [Suspect]
     Active Substance: RIVAROXABAN
     Route: 048
     Dates: end: 202002

REACTIONS (4)
  - Acute kidney injury [Recovering/Resolving]
  - Blood pressure increased [Unknown]
  - Tubulointerstitial nephritis [Recovering/Resolving]
  - Escherichia infection [Unknown]

NARRATIVE: CASE EVENT DATE: 202002
